FAERS Safety Report 24941493 (Version 1)
Quarter: 2025Q1

REPORT INFORMATION
  Report Type: Spontaneous
  Country: FR (occurrence: FR)
  Receive Date: 20250207
  Receipt Date: 20250207
  Transmission Date: 20250409
  Serious: Yes (Other)
  Sender: MYLAN
  Company Number: FR-MYLANLABS-2025M1010358

PATIENT
  Age: 68 Year
  Sex: Male

DRUGS (6)
  1. VORICONAZOLE [Suspect]
     Active Substance: VORICONAZOLE
     Indication: Aspergillus infection
     Route: 065
  2. TACROLIMUS [Interacting]
     Active Substance: TACROLIMUS
     Indication: Immunosuppressant drug therapy
     Route: 065
  3. POSACONAZOLE [Interacting]
     Active Substance: POSACONAZOLE
     Indication: Aspergillus infection
     Route: 065
  4. ESOMEPRAZOLE [Interacting]
     Active Substance: ESOMEPRAZOLE
     Indication: Product used for unknown indication
     Route: 065
  5. ISAVUCONAZOLE [Interacting]
     Active Substance: ISAVUCONAZOLE
     Indication: Aspergillus infection
     Dosage: 100 MILLIGRAM, QD
     Route: 065
  6. ISAVUCONAZOLE [Interacting]
     Active Substance: ISAVUCONAZOLE
     Dosage: 200 MILLIGRAM, QD
     Route: 065

REACTIONS (10)
  - Hepatotoxicity [Unknown]
  - Nephropathy toxic [Unknown]
  - Drug interaction [Unknown]
  - Drug level increased [Unknown]
  - Fatigue [Unknown]
  - Dyspnoea [Unknown]
  - Taste disorder [Unknown]
  - Asthenia [Unknown]
  - Decreased appetite [Unknown]
  - Drug intolerance [Unknown]
